FAERS Safety Report 6508593-5 (Version None)
Quarter: 2009Q4

REPORT INFORMATION
  Report Type: 
  Country: None (occurrence: None)
  Receive Date: 20091221
  Receipt Date: 20091208
  Transmission Date: 20100525
  Serious: Yes (Hospitalization)
  Sender: FDA-Public Use
  Company Number: US-ELI_LILLY_AND_COMPANY-US200912002206

PATIENT
  Sex: Female

DRUGS (3)
  1. FORTEO [Suspect]
     Dosage: 20 UG, DAILY (1/D)
     Dates: start: 20091001
  2. CALCIUM [Concomitant]
     Dosage: UNK, UNKNOWN
     Route: 065
  3. VITAMIN D [Concomitant]
     Dosage: UNK, UNKNOWN
     Route: 065

REACTIONS (1)
  - HIP FRACTURE [None]
